FAERS Safety Report 5591693-4 (Version None)
Quarter: 2008Q1

REPORT INFORMATION
  Report Type: 
  Country: None (occurrence: None)
  Receive Date: 20080115
  Receipt Date: 20080104
  Transmission Date: 20080703
  Serious: Yes (Life-Threatening)
  Sender: FDA-Public Use
  Company Number: FR-TYCO HEALTHCARE/MALLINCKRODT-T200800016

PATIENT

DRUGS (7)
  1. HEXABRIX [Suspect]
     Indication: ARTERIOGRAM CORONARY
     Dosage: 80 ML, SINGLE
     Dates: start: 20071123, end: 20071123
  2. HEXABRIX [Suspect]
     Dosage: UNK, SINGLE
     Dates: start: 20071123, end: 20071123
  3. HEXABRIX [Suspect]
     Dosage: UNK, SINGLE
     Dates: start: 20071123, end: 20071123
  4. HEXABRIX [Suspect]
     Dosage: UNK, SINGLE
     Dates: start: 20071123, end: 20071123
  5. ORAL ANTICOAGULANTS [Concomitant]
     Dosage: UNK, UNK
     Route: 048
  6. RADIOTHERAPY [Concomitant]
  7. CHEMOTHERAPEUTICS NOS [Concomitant]

REACTIONS (4)
  - ANAPHYLACTIC SHOCK [None]
  - ANGIOEDEMA [None]
  - HYPOTENSION [None]
  - LARYNGEAL DYSPNOEA [None]
